FAERS Safety Report 23935308 (Version 2)
Quarter: 2024Q2

REPORT INFORMATION
  Report Type: Spontaneous
  Country: US (occurrence: US)
  Receive Date: 20240604
  Receipt Date: 20240626
  Transmission Date: 20240716
  Serious: No
  Sender: FDA-Public Use
  Company Number: US-BEH-2024171754

PATIENT
  Sex: Female
  Weight: 56 kg

DRUGS (20)
  1. HIZENTRA [Suspect]
     Active Substance: HUMAN IMMUNOGLOBULIN G
     Indication: Humoral immune defect
     Dosage: 10 G, QW
     Route: 058
     Dates: start: 2024
  2. HIZENTRA [Suspect]
     Active Substance: HUMAN IMMUNOGLOBULIN G
     Dosage: UNK
     Route: 065
     Dates: start: 20240430
  3. ACYCLOVIR [Concomitant]
     Active Substance: ACYCLOVIR
  4. AZELASTINE [Concomitant]
     Active Substance: AZELASTINE\AZELASTINE HYDROCHLORIDE
  5. BIOTIN [Concomitant]
     Active Substance: BIOTIN
  6. CALCIUM [Concomitant]
     Active Substance: CALCIUM
  7. DIFLUCAN [Concomitant]
     Active Substance: FLUCONAZOLE
  8. ESTRADIOL [Concomitant]
     Active Substance: ESTRADIOL
  9. FLONASE [Concomitant]
     Active Substance: FLUTICASONE PROPIONATE
  10. GLUCOSAMINE [Concomitant]
     Active Substance: GLUCOSAMINE
  11. MINOXIDIL [Concomitant]
     Active Substance: MINOXIDIL
  12. DIMETHYL SULFONE [Concomitant]
     Active Substance: DIMETHYL SULFONE
  13. PROGESTERONE [Concomitant]
     Active Substance: PROGESTERONE
  14. PROPECIA [Concomitant]
     Active Substance: FINASTERIDE
  15. ROPINIROLE [Concomitant]
     Active Substance: ROPINIROLE
  16. SPIRONOLACTONE [Concomitant]
     Active Substance: SPIRONOLACTONE
  17. TESTOSTERONE [Concomitant]
     Active Substance: TESTOSTERONE
  18. VITAMIN D [Concomitant]
     Active Substance: VITAMIN D NOS
  19. FINASTERIDE [Concomitant]
     Active Substance: FINASTERIDE
     Dosage: 5 MG
  20. PREDNISONE [Concomitant]
     Active Substance: PREDNISONE
     Dosage: 50 MG

REACTIONS (13)
  - Weight increased [Not Recovered/Not Resolved]
  - Lack of satiety [Unknown]
  - Product supply issue [Unknown]
  - Injection site pruritus [Unknown]
  - Injection site pain [Unknown]
  - Injection site erythema [Unknown]
  - Injection site swelling [Unknown]
  - Pyrexia [Unknown]
  - Migraine [Unknown]
  - Vertigo [Unknown]
  - Feeling abnormal [Unknown]
  - Sciatica [Unknown]
  - Therapy interrupted [Unknown]

NARRATIVE: CASE EVENT DATE: 20240101
